FAERS Safety Report 8985919 (Version 1)
Quarter: 2012Q4

REPORT INFORMATION
  Report Type: 
  Country: US (occurrence: US)
  Receive Date: 20121226
  Receipt Date: 20121226
  Transmission Date: 20130627
  Serious: No
  Sender: FDA-Public Use
  Company Number: US-ABBOTT-12P-163-0894963-00

PATIENT
  Sex: Male
  Weight: 97.61 kg

DRUGS (4)
  1. LUPRON DEPOT 22.5 MG [Suspect]
     Indication: PROSTATE CANCER
     Dates: start: 2009
  2. UNKNOWN HYPERTENSION MEDICATION [Concomitant]
     Indication: HYPERTENSION
  3. UNKNOWN BLOOD SUGAR MEDICATION [Concomitant]
     Indication: DIABETES MELLITUS
  4. CRESTOR [Concomitant]
     Indication: BLOOD CHOLESTEROL

REACTIONS (3)
  - Posture abnormal [Not Recovered/Not Resolved]
  - Posture abnormal [Not Recovered/Not Resolved]
  - Body height decreased [Not Recovered/Not Resolved]
